FAERS Safety Report 11637947 (Version 1)
Quarter: 2015Q4

REPORT INFORMATION
  Report Type: Spontaneous
  Country: JP (occurrence: JP)
  Receive Date: 20151016
  Receipt Date: 20151016
  Transmission Date: 20160304
  Serious: Yes (Death)
  Sender: FDA-Public Use
  Company Number: JP-PRINSTON PHARMACEUTICAL INC.-2015PRN00089

PATIENT
  Sex: Female
  Weight: 57.5 kg

DRUGS (4)
  1. DIPHENHYDRAMINE. [Suspect]
     Active Substance: DIPHENHYDRAMINE
  2. PAROXETINE [Suspect]
     Active Substance: PAROXETINE\PAROXETINE HYDROCHLORIDE
  3. PHENOBARBITAL. [Suspect]
     Active Substance: PHENOBARBITAL
  4. DIAZEPAM. [Suspect]
     Active Substance: DIAZEPAM

REACTIONS (3)
  - Toxicity to various agents [Fatal]
  - Drug interaction [Fatal]
  - Depressed level of consciousness [Fatal]
